FAERS Safety Report 6189033-5 (Version None)
Quarter: 2009Q2

REPORT INFORMATION
  Report Type: 
  Country: None (occurrence: None)
  Receive Date: 20090513
  Receipt Date: 20090506
  Transmission Date: 20091009
  Serious: Yes (Hospitalization)
  Sender: FDA-Public Use
  Company Number: US-ELI_LILLY_AND_COMPANY-US200905001246

PATIENT
  Sex: Male
  Weight: 108.84 kg

DRUGS (10)
  1. HUMALOG [Suspect]
     Indication: TYPE 2 DIABETES MELLITUS
     Dosage: 10 U, 4/D
  2. HUMALOG [Suspect]
  3. CYMBALTA [Suspect]
     Indication: COGNITIVE DISORDER
     Dosage: 60 MG, DAILY (1/D)
     Dates: start: 20071101
  4. LANTUS [Concomitant]
  5. NITROGLYCERIN [Concomitant]
  6. COZAAR [Concomitant]
  7. LASIX [Concomitant]
  8. METOPROLOL [Concomitant]
  9. SYNTHROID [Concomitant]
  10. ASPIRIN [Concomitant]
     Dosage: 81 MG, DAILY (1/D)

REACTIONS (10)
  - ARTHRALGIA [None]
  - ARTHROPATHY [None]
  - COGNITIVE DISORDER [None]
  - CORONARY ARTERY OCCLUSION [None]
  - DEMENTIA [None]
  - DISABILITY [None]
  - DRUG INEFFECTIVE [None]
  - HALLUCINATION [None]
  - MEMORY IMPAIRMENT [None]
  - OVERWEIGHT [None]
